FAERS Safety Report 8011656-9 (Version None)
Quarter: 2011Q4

REPORT INFORMATION
  Report Type: 
  Country: None (occurrence: None)
  Receive Date: 20111228
  Receipt Date: 20111216
  Transmission Date: 20120403
  Serious: Yes (Life-Threatening)
  Sender: FDA-Public Use
  Company Number: FR-ELI_LILLY_AND_COMPANY-FR201112004868

PATIENT
  Sex: Male
  Weight: 92 kg

DRUGS (4)
  1. CISPLATIN [Suspect]
     Indication: NON-SMALL CELL LUNG CANCER
     Dosage: 115 MG, UNK
     Route: 042
     Dates: start: 20110905, end: 20111114
  2. CISPLATIN [Suspect]
     Dosage: UNK
     Dates: start: 20111212
  3. GEMCITABINE HYDROCHLORIDE [Suspect]
     Dosage: UNK
     Dates: start: 20111212
  4. GEMCITABINE HYDROCHLORIDE [Suspect]
     Indication: NON-SMALL CELL LUNG CANCER
     Dosage: 1900 MG, UNK
     Route: 042
     Dates: start: 20110905, end: 20111114

REACTIONS (1)
  - NEUTROPENIA [None]
